FAERS Safety Report 9299804 (Version 1)
Quarter: 2013Q2

REPORT INFORMATION
  Report Type: Spontaneous
  Country: IT (occurrence: IT)
  Receive Date: 20130521
  Receipt Date: 20130521
  Transmission Date: 20140414
  Serious: Yes (Hospitalization)
  Sender: FDA-Public Use
  Company Number: IT-ROCHE-1226467

PATIENT
  Sex: Male

DRUGS (6)
  1. LUCENTIS [Suspect]
     Indication: AGE-RELATED MACULAR DEGENERATION
     Dosage: 1ST THERAPY
     Route: 050
     Dates: start: 20110418
  2. LUCENTIS [Suspect]
     Dosage: 2ND THERAPY
     Route: 050
     Dates: start: 20120731, end: 20120731
  3. CAPOTEN (ITALY) [Concomitant]
  4. DILTIAZEM HYDROCHLORIDE [Concomitant]
  5. ACETYLSALICYLIC ACID [Concomitant]
  6. SELECTIN [Concomitant]

REACTIONS (1)
  - Acute myocardial infarction [Recovering/Resolving]
